FAERS Safety Report 17674148 (Version 1)
Quarter: 2020Q2

REPORT INFORMATION
  Report Type: Spontaneous
  Country: CA (occurrence: CA)
  Receive Date: 20200416
  Receipt Date: 20200416
  Transmission Date: 20200714
  Serious: Yes (Disabling, Other)
  Sender: FDA-Public Use
  Company Number: CA-TEVA-2020-CA-1222147

PATIENT
  Age: 6 Year
  Sex: Female

DRUGS (9)
  1. VINCRISTINE SULFATE. [Suspect]
     Active Substance: VINCRISTINE SULFATE
     Indication: ACUTE LYMPHOCYTIC LEUKAEMIA
     Route: 042
  2. HYDROCORTISONE. [Concomitant]
     Active Substance: HYDROCORTISONE
  3. ONDANSETRON [Concomitant]
     Active Substance: ONDANSETRON
  4. SULFAMETHOXAZOLE/TRIMETHOPRIM [Concomitant]
     Active Substance: SULFAMETHOXAZOLE\TRIMETHOPRIM
  5. SALBUTAMOL [Concomitant]
     Active Substance: ALBUTEROL
  6. CYTARABINE. [Concomitant]
     Active Substance: CYTARABINE
  7. METHOTREXATE. [Concomitant]
     Active Substance: METHOTREXATE
  8. FISH OIL [Concomitant]
     Active Substance: FISH OIL
  9. AMOXICILLIN AND CLAVULANATE POTASSIUM [Concomitant]
     Active Substance: AMOXICILLIN\CLAVULANATE POTASSIUM

REACTIONS (1)
  - Neuropathy peripheral [Unknown]
